FAERS Safety Report 5807507-0 (Version None)
Quarter: 2008Q3

REPORT INFORMATION
  Report Type: 
  Country: None (occurrence: None)
  Receive Date: 20080711
  Receipt Date: 20080702
  Transmission Date: 20090109
  Serious: No
  Sender: FDA-Public Use
  Company Number: US-BAYER-200812340BCC

PATIENT
  Age: 76 Year
  Sex: Female
  Weight: 52 kg

DRUGS (5)
  1. PHILLIPS MILK OF MAGNESIA ORIGINAL [Suspect]
     Indication: CONSTIPATION
     Dosage: TOTAL DAILY DOSE: 60 ML  UNIT DOSE: 30 ML
     Route: 048
  2. PHILLIPS MILK OF MAGNESIA CHERRY [Suspect]
     Indication: CONSTIPATION PROPHYLAXIS
     Dosage: TOTAL DAILY DOSE: 60 ML  UNIT DOSE: 30 ML
     Route: 048
  3. COZAAR [Concomitant]
  4. LIPITOR [Concomitant]
  5. PRILOSEC [Concomitant]

REACTIONS (1)
  - BLOOD GLUCOSE INCREASED [None]
